FAERS Safety Report 17748901 (Version 1)
Quarter: 2020Q2

REPORT INFORMATION
  Report Type: Spontaneous
  Country: US (occurrence: US)
  Receive Date: 20200505
  Receipt Date: 20200505
  Transmission Date: 20200714
  Serious: No
  Sender: FDA-Public Use
  Company Number: US-ROCHE-2512467

PATIENT
  Age: 69 Year
  Sex: Female
  Weight: 86.26 kg

DRUGS (1)
  1. ESBRIET [Suspect]
     Active Substance: PIRFENIDONE
     Indication: IDIOPATHIC PULMONARY FIBROSIS
     Dosage: ONGOING:YES
     Route: 048
     Dates: start: 201907

REACTIONS (4)
  - Gait inability [Recovered/Resolved]
  - Intraocular pressure increased [Unknown]
  - Nausea [Recovered/Resolved]
  - Musculoskeletal pain [Recovered/Resolved]

NARRATIVE: CASE EVENT DATE: 201909
